FAERS Safety Report 14031184 (Version 1)
Quarter: 2017Q4

REPORT INFORMATION
  Report Type: Spontaneous
  Country: US (occurrence: US)
  Receive Date: 20171002
  Receipt Date: 20171002
  Transmission Date: 20180321
  Serious: No
  Sender: FDA-Public Use
  Company Number: US-GLAXOSMITHKLINE-US2017GSK148275

PATIENT
  Sex: Female

DRUGS (1)
  1. MUPIROCIN OINTMENT [Suspect]
     Active Substance: MUPIROCIN

REACTIONS (1)
  - Drug dispensing error [Unknown]
